FAERS Safety Report 13390408 (Version 16)
Quarter: 2021Q3

REPORT INFORMATION
  Report Type: Spontaneous
  Country: US (occurrence: US)
  Receive Date: 20170331
  Receipt Date: 20210702
  Transmission Date: 20211014
  Serious: Yes (Hospitalization, Other)
  Sender: FDA-Public Use
  Company Number: US-PFIZER INC-2016585592

PATIENT
  Age: 65 Year
  Sex: Female
  Weight: 104.33 kg

DRUGS (3)
  1. XELJANZ XR [Suspect]
     Active Substance: TOFACITINIB CITRATE
     Indication: RHEUMATOID ARTHRITIS
     Dosage: 11 MG, 1X/DAY
     Route: 048
  2. XELJANZ XR [Suspect]
     Active Substance: TOFACITINIB CITRATE
     Dosage: 22 MG, DAILY (11 MG 2 TABLETS DAILY)
     Route: 048
  3. XELJANZ XR [Suspect]
     Active Substance: TOFACITINIB CITRATE
     Dosage: 11 MG, 2X/DAY (1 TABLET TWICE A DAY/ONCE IN THE MORNING AND ONCE IN THE EVENING)
     Dates: start: 2018

REACTIONS (9)
  - Foot fracture [Unknown]
  - Renal disorder [Unknown]
  - Ear pain [Unknown]
  - Wound infection [Not Recovered/Not Resolved]
  - Product prescribing error [Unknown]
  - Chest pain [Recovered/Resolved]
  - Fatigue [Unknown]
  - Ear swelling [Unknown]
  - Condition aggravated [Not Recovered/Not Resolved]

NARRATIVE: CASE EVENT DATE: 20200511
